FAERS Safety Report 5413931-0 (Version None)
Quarter: 2007Q3

REPORT INFORMATION
  Report Type: 
  Country: None (occurrence: None)
  Receive Date: 20070814
  Receipt Date: 20070801
  Transmission Date: 20080115
  Serious: Yes (Hospitalization)
  Sender: FDA-Public Use
  Company Number: CN-BOEHRINGER INGELHEIM PHARMACEUTICALS, INC.-2007-DE-04533GD

PATIENT
  Age: 5 Decade
  Sex: Male

DRUGS (6)
  1. DIPYRIDAMOLE [Suspect]
     Indication: ANTIPLATELET THERAPY
     Dates: start: 20040701
  2. ASPIRIN [Suspect]
     Indication: ANTIPLATELET THERAPY
     Dates: start: 20040615
  3. CLOPIDOGREL [Suspect]
     Indication: ANTIPLATELET THERAPY
     Dates: start: 20040627, end: 20040701
  4. SIROLIMUS [Suspect]
     Dates: start: 20040625
  5. ATORVASTATIN CALCIUM [Concomitant]
  6. METOPROLOL SUCCINATE [Concomitant]

REACTIONS (3)
  - CARDIOGENIC SHOCK [None]
  - MYOCARDIAL INFARCTION [None]
  - THROMBOSIS IN DEVICE [None]
